FAERS Safety Report 23387630 (Version 1)
Quarter: 2024Q1

REPORT INFORMATION
  Report Type: Spontaneous
  Country: NL (occurrence: NL)
  Receive Date: 20240110
  Receipt Date: 20240110
  Transmission Date: 20240410
  Serious: Yes (Other)
  Sender: FDA-Public Use
  Company Number: None

PATIENT
  Age: 21 Year
  Sex: Female
  Weight: 68 kg

DRUGS (1)
  1. ETANERCEPT [Suspect]
     Active Substance: ETANERCEPT
     Indication: Psoriatic arthropathy
     Dosage: 2 TIMES PER WEEK 25 MG?ETANERCEPT INJVLST 50MG/ML
     Route: 065
     Dates: start: 20170101, end: 20230913

REACTIONS (2)
  - Product substitution issue [Unknown]
  - Pemphigoid [Recovering/Resolving]
